FAERS Safety Report 22196687 (Version 2)
Quarter: 2023Q2

REPORT INFORMATION
  Report Type: Spontaneous
  Country: US (occurrence: US)
  Receive Date: 20230411
  Receipt Date: 20230414
  Transmission Date: 20230722
  Serious: No
  Sender: FDA-Public Use
  Company Number: US-JNJFOC-20230360958

PATIENT
  Age: 60 Year
  Sex: Male

DRUGS (3)
  1. MENS ROGAINE EXTRA STRENGTH [Suspect]
     Active Substance: MINOXIDIL
     Indication: Alopecia
     Route: 065
     Dates: start: 20221220
  2. PAROXETINE [Concomitant]
     Active Substance: PAROXETINE
  3. NAPROXEN [Concomitant]
     Active Substance: NAPROXEN

REACTIONS (1)
  - Drug hypersensitivity [Recovering/Resolving]
